FAERS Safety Report 6532247-2 (Version None)
Quarter: 2010Q1

REPORT INFORMATION
  Report Type: 
  Country: None (occurrence: None)
  Receive Date: 20100108
  Receipt Date: 20091230
  Transmission Date: 20100710
  Serious: Yes (Other)
  Sender: FDA-Public Use
  Company Number: PHHY2009TR60227

PATIENT
  Age: 30 Year
  Sex: Male

DRUGS (7)
  1. CYCLOSPORINE [Suspect]
     Indication: STILL'S DISEASE ADULT ONSET
     Dosage: 3 MG/KG/DAY
  2. METHOTREXATE [Concomitant]
     Indication: STILL'S DISEASE ADULT ONSET
     Dosage: 10 MG PER WEEK
  3. METHOTREXATE [Concomitant]
     Dosage: 15 MG PER WEEK
  4. CORTICOSTEROIDS [Concomitant]
     Indication: STILL'S DISEASE ADULT ONSET
     Dosage: 1 MG/KG
  5. CORTICOSTEROIDS [Concomitant]
     Dosage: 16 MG/DAY
  6. CORTICOSTEROIDS [Concomitant]
     Dosage: 4 MG/DAY
  7. NSAID'S [Concomitant]
     Indication: STILL'S DISEASE ADULT ONSET
     Dosage: UNK

REACTIONS (9)
  - ANAEMIA OF CHRONIC DISEASE [None]
  - DYSPNOEA [None]
  - FIBROSIS [None]
  - GENERALISED OEDEMA [None]
  - GOITRE [None]
  - IMMUNOSUPPRESSANT DRUG LEVEL INCREASED [None]
  - LOCAL SWELLING [None]
  - NECK MASS [None]
  - OESOPHAGEAL DISORDER [None]
